FAERS Safety Report 6399071-5 (Version None)
Quarter: 2009Q4

REPORT INFORMATION
  Report Type: 
  Country: None (occurrence: None)
  Receive Date: 20091008
  Receipt Date: 20090928
  Transmission Date: 20100525
  Serious: Yes (Hospitalization)
  Sender: FDA-Public Use
  Company Number: 8052662

PATIENT
  Sex: Female
  Weight: 61.23 kg

DRUGS (7)
  1. KEPPRA [Suspect]
     Indication: CONVULSION
     Dosage: 750 MG 2/D PO
     Route: 048
     Dates: start: 20050101, end: 20090417
  2. KEPPRA [Suspect]
     Indication: CONVULSION
     Dosage: 1500 MG /D PO
     Route: 048
     Dates: start: 20090417
  3. DILANTIN [Concomitant]
  4. LISINOPRIL [Concomitant]
  5. CALCIUM [Concomitant]
  6. GLUCOSAMINE CHONDROITIN [Concomitant]
  7. ASPIRIN [Concomitant]

REACTIONS (2)
  - CRYING [None]
  - SCRATCH [None]
